FAERS Safety Report 25060926 (Version 2)
Quarter: 2025Q1

REPORT INFORMATION
  Report Type: Spontaneous
  Country: US (occurrence: US)
  Receive Date: 20250310
  Receipt Date: 20250311
  Transmission Date: 20250409
  Serious: No
  Sender: CALLIDITAS THERAPEUTICS AB
  Company Number: US-Calliditas-2025CAL00582

PATIENT
  Age: 42 Year
  Sex: Female

DRUGS (7)
  1. TARPEYO [Suspect]
     Active Substance: BUDESONIDE
     Indication: IgA nephropathy
     Route: 048
     Dates: start: 20241204
  2. LIPITOR [Concomitant]
     Active Substance: ATORVASTATIN CALCIUM
  3. JARDIANCE [Concomitant]
     Active Substance: EMPAGLIFLOZIN
  4. KERENDIA [Concomitant]
     Active Substance: FINERENONE
  5. SYNTHROID [Concomitant]
     Active Substance: LEVOTHYROXINE SODIUM
  6. COZAAR [Concomitant]
     Active Substance: LOSARTAN POTASSIUM
  7. FISH OIL [Concomitant]
     Active Substance: FISH OIL

REACTIONS (2)
  - Menstrual disorder [Unknown]
  - Menstrual clots [Unknown]
